FAERS Safety Report 9263152 (Version 1)
Quarter: 2013Q2

REPORT INFORMATION
  Report Type: Spontaneous
  Country: US (occurrence: None)
  Receive Date: 20130426
  Receipt Date: 20130426
  Transmission Date: 20140414
  Serious: Yes (Hospitalization)
  Sender: FDA-Public Use
  Company Number: None

PATIENT
  Age: 83 Year
  Sex: Female
  Weight: 61.5 kg

DRUGS (14)
  1. MULTAQ [Suspect]
     Indication: ATRIAL FIBRILLATION
     Dosage: Q AM
     Route: 048
     Dates: start: 20130422, end: 20130423
  2. ALENDRONATE [Concomitant]
  3. ALBUTEROL [Concomitant]
  4. MULTIVITAMIN [Concomitant]
  5. LEVOTHYROXINE [Concomitant]
  6. ATORVASTATIN [Concomitant]
  7. LISINOPRIL [Concomitant]
  8. NASONEX [Concomitant]
  9. OSTEO BI-FLEX (OSTEO BI-FLEX) [Concomitant]
  10. HOME OXYGEN [Concomitant]
  11. PRESERVISION LUTEIN [Concomitant]
  12. OMEPRAZOLE [Concomitant]
  13. WARFARIN [Concomitant]
  14. DILTIAZEM [Concomitant]

REACTIONS (11)
  - Rash macular [None]
  - Nausea [None]
  - Dizziness [None]
  - Renal failure acute [None]
  - Hypotension [None]
  - Blister [None]
  - Leukocytosis [None]
  - No therapeutic response [None]
  - Asthenia [None]
  - Burning sensation [None]
  - Pain [None]
